FAERS Safety Report 7960580-6 (Version None)
Quarter: 2011Q4

REPORT INFORMATION
  Report Type: 
  Country: None (occurrence: None)
  Receive Date: 20111206
  Receipt Date: 20111130
  Transmission Date: 20120403
  Serious: Yes (Other)
  Sender: FDA-Public Use
  Company Number: DE-AMGEN-DEUSP2011063295

PATIENT
  Sex: Female

DRUGS (1)
  1. PROLIA [Suspect]
     Indication: PRODUCT USED FOR UNKNOWN INDICATION
     Dosage: UNK
     Dates: start: 20111128

REACTIONS (5)
  - PYREXIA [None]
  - PAIN IN EXTREMITY [None]
  - INFLAMMATION [None]
  - ARTHRALGIA [None]
  - ERYTHEMA [None]
